FAERS Safety Report 10521454 (Version 1)
Quarter: 2014Q4

REPORT INFORMATION
  Report Type: Spontaneous
  Country: US (occurrence: None)
  Receive Date: 20141001
  Receipt Date: 20141001
  Transmission Date: 20150528
  Serious: Yes (Other)
  Sender: FDA-Public Use
  Company Number: 121976U

PATIENT
  Age: 21 Year
  Sex: Female

DRUGS (4)
  1. KEPPRA [Suspect]
     Active Substance: LEVETIRACETAM
     Indication: SEIZURE
  2. ATIVAN [Concomitant]
     Active Substance: LORAZEPAM
  3. PROGESTERINE (PROGESTERONE) [Concomitant]
  4. VIMPAT [Suspect]
     Active Substance: LACOSAMIDE
     Indication: SEIZURE
     Dosage: STARTED APPROXIMATELY 5 MONTHS AGO

REACTIONS (1)
  - Seizure [None]
